FAERS Safety Report 6865821-4 (Version None)
Quarter: 2010Q3

REPORT INFORMATION
  Report Type: 
  Country: None (occurrence: None)
  Receive Date: 20100720
  Receipt Date: 20100714
  Transmission Date: 20110219
  Serious: Yes (Death)
  Sender: FDA-Public Use
  Company Number: 2010JP004062

PATIENT
  Age: 54 Year
  Sex: Female

DRUGS (5)
  1. PROGRAF [Suspect]
     Indication: STEM CELL TRANSPLANT
     Dosage: 0.02 MG/KG, CONTINUOUS, IV DRIP
     Route: 041
  2. PROGRAF [Suspect]
     Indication: STEM CELL TRANSPLANT
     Dosage: ORAL
     Route: 048
  3. ACYCLOVIR [Concomitant]
  4. NEUPOGEN [Concomitant]
  5. STEROID [Concomitant]

REACTIONS (1)
  - INTERSTITIAL LUNG DISEASE [None]
